FAERS Safety Report 9369584 (Version 4)
Quarter: 2013Q3

REPORT INFORMATION
  Report Type: Spontaneous
  Country: JP (occurrence: JP)
  Receive Date: 20130626
  Receipt Date: 20130820
  Transmission Date: 20140515
  Serious: Yes (Other)
  Sender: FDA-Public Use
  Company Number: JP-ASTRAZENECA-2013SE47872

PATIENT
  Age: 18 Year
  Sex: Female

DRUGS (1)
  1. PULMICORT TURBUHALER [Suspect]
     Indication: ASTHMA
     Dosage: 56 DOSES, 2 DF TWO TIMES A DAY
     Route: 055
     Dates: start: 20130123, end: 20130125

REACTIONS (2)
  - Exposure during pregnancy [Unknown]
  - Premature labour [Unknown]
